FAERS Safety Report 8379388-5 (Version None)
Quarter: 2012Q2

REPORT INFORMATION
  Report Type: 
  Country: None (occurrence: None)
  Receive Date: 20120523
  Receipt Date: 20120516
  Transmission Date: 20120825
  Serious: Yes (Hospitalization, Other)
  Sender: FDA-Public Use
  Company Number: US-BAYER-201026387NA

PATIENT
  Age: 24 Year
  Sex: Female
  Weight: 49.887 kg

DRUGS (33)
  1. TORADOL [Concomitant]
     Dosage: 10 MG, PRN
     Route: 048
  2. TRAZODONE HCL [Concomitant]
     Dosage: 25 MG, HS
     Route: 048
  3. FLUCONAZOLE [Concomitant]
     Dosage: 200 MG, DAILY
     Route: 048
     Dates: start: 20091104
  4. CITALOPRAM HYDROBROMIDE [Concomitant]
     Dosage: 40 MG, UNK
     Route: 048
     Dates: start: 20091104
  5. MICRONOR [Concomitant]
  6. RELAFEN [Concomitant]
     Dosage: 500 MG, UNK
     Route: 048
  7. XANAX [Concomitant]
     Dosage: UNK UNK, PRN
     Route: 048
  8. ANCEF [Concomitant]
     Dosage: 1GM
     Dates: start: 20091106
  9. CLINDAMYCIN [Concomitant]
     Dosage: UNK
     Route: 061
     Dates: start: 20091123
  10. CEFTRIAXONE SODIUM [Concomitant]
     Indication: LYME DISEASE
     Dosage: UNK
     Route: 048
     Dates: start: 20080101, end: 20100101
  11. LEVBID [Concomitant]
     Route: 048
  12. DOXYCYCLINE MONOHYDRATE [Concomitant]
     Dosage: 40 MG, DAILY
     Route: 048
     Dates: start: 20091104
  13. ATIVAN [Concomitant]
     Dosage: 1 MG, UNK
     Dates: start: 20090916
  14. BENADRYL [Concomitant]
     Dosage: 50 MG, UNK
     Dates: start: 20091106
  15. TOPAMAX [Concomitant]
  16. WARFARIN [Concomitant]
  17. TYLENOL [Concomitant]
     Dosage: UNK UNK, PRN
     Route: 048
  18. VERSED [Concomitant]
     Dosage: 5 MG, UNK
     Dates: start: 20091106
  19. FENTANYL-100 [Concomitant]
     Dosage: 300 MCG/24HR, UNK
     Dates: start: 20091106
  20. METHYLPREDNISOLONE ACETATE [Concomitant]
     Dosage: 4 MG, UNK
     Dates: start: 20091203
  21. YASMIN [Suspect]
     Indication: ORAL CONTRACEPTION
     Dosage: UNK
     Route: 048
     Dates: start: 20020101, end: 20080101
  22. DROSPIRENONE AND ETHINYL ESTRADIOL [Suspect]
     Indication: ACNE
  23. ATENOLOL [Concomitant]
     Dosage: 25 MG, QD
     Route: 048
  24. CLONAZEPAM [Concomitant]
     Dosage: 0.5 MG, UNK
     Dates: start: 20091014, end: 20100130
  25. YASMIN [Suspect]
     Indication: MENSTRUATION IRREGULAR
  26. DROSPIRENONE AND ETHINYL ESTRADIOL [Suspect]
     Indication: MENSTRUATION IRREGULAR
  27. ZOFRAN [Concomitant]
     Dosage: 8 MG, UNK
     Route: 048
  28. GABAPENTIN [Concomitant]
     Route: 048
  29. YASMIN [Suspect]
     Indication: ACNE
  30. DROSPIRENONE AND ETHINYL ESTRADIOL [Suspect]
     Indication: ORAL CONTRACEPTION
     Dosage: UNK
     Route: 048
     Dates: start: 20080101, end: 20100101
  31. PRENATAL [Concomitant]
     Dosage: 1 TABLET DAILY
     Route: 048
     Dates: start: 20091104
  32. CEFPODOXIME PROXETIL [Concomitant]
     Dosage: 200 MG, DAILY
     Dates: start: 20090916
  33. MINOCYCLINE HCL [Concomitant]
     Dosage: 100 MG, UNK
     Dates: start: 20091126

REACTIONS (4)
  - CHEST PAIN [None]
  - PULMONARY EMBOLISM [None]
  - GALLBLADDER DISORDER [None]
  - ABDOMINAL PAIN UPPER [None]
